FAERS Safety Report 19270338 (Version 3)
Quarter: 2021Q2

REPORT INFORMATION
  Report Type: Spontaneous
  Country: CA (occurrence: CA)
  Receive Date: 20210518
  Receipt Date: 20210630
  Transmission Date: 20210717
  Serious: Yes (Other)
  Sender: FDA-Public Use
  Company Number: CA-PFIZER INC-2021334732

PATIENT
  Age: 63 Year
  Sex: Female
  Weight: 86.7 kg

DRUGS (1)
  1. RUXIENCE [Suspect]
     Active Substance: RITUXIMAB-PVVR
     Indication: NEPHROPATHY
     Dosage: 1000 MG AT DAY1 AND 15
     Route: 042
     Dates: start: 20210506

REACTIONS (2)
  - Off label use [Unknown]
  - Nephrotic syndrome [Not Recovered/Not Resolved]

NARRATIVE: CASE EVENT DATE: 20210506
